FAERS Safety Report 6638230-0 (Version None)
Quarter: 2010Q1

REPORT INFORMATION
  Report Type: 
  Country: None (occurrence: None)
  Receive Date: 20100312
  Receipt Date: 20100302
  Transmission Date: 20100710
  Serious: Yes (Disabling)
  Sender: FDA-Public Use
  Company Number: WWISSUE-408

PATIENT
  Age: 70 Year
  Sex: Female
  Weight: 52.1637 kg

DRUGS (2)
  1. ETHAMBUTOL HYDROCHLORIDE [Suspect]
     Indication: LUNG INFECTION
     Dates: start: 20080701, end: 20080801
  2. . [Concomitant]

REACTIONS (5)
  - BLINDNESS [None]
  - HYPOAESTHESIA [None]
  - NEUROPATHY PERIPHERAL [None]
  - OPTIC NERVE DISORDER [None]
  - PARAESTHESIA [None]
